FAERS Safety Report 13597088 (Version 1)
Quarter: 2017Q2

REPORT INFORMATION
  Report Type: Spontaneous
  Country: US (occurrence: US)
  Receive Date: 20170531
  Receipt Date: 20170531
  Transmission Date: 20170830
  Serious: Yes (Death)
  Sender: FDA-Public Use
  Company Number: PHHY2017US079525

PATIENT
  Sex: Male

DRUGS (1)
  1. LAPATINIB [Suspect]
     Active Substance: LAPATINIB
     Indication: EPENDYMOMA MALIGNANT
     Dosage: UNK
     Route: 065

REACTIONS (3)
  - Ependymoma malignant [Fatal]
  - Recurrent cancer [Fatal]
  - Product use in unapproved indication [Unknown]
